FAERS Safety Report 6678684-7 (Version None)
Quarter: 2010Q2

REPORT INFORMATION
  Report Type: 
  Country: None (occurrence: None)
  Receive Date: 20100413
  Receipt Date: 20100402
  Transmission Date: 20101027
  Serious: Yes (Hospitalization)
  Sender: FDA-Public Use
  Company Number: US-PFIZER INC-2010043000

PATIENT
  Sex: Female
  Weight: 90.703 kg

DRUGS (7)
  1. CELEBREX [Suspect]
     Dosage: UNK
     Dates: start: 20100319, end: 20100301
  2. NEURONTIN [Suspect]
     Dosage: UNK
     Dates: start: 20100319, end: 20100301
  3. LYRICA [Suspect]
     Indication: CONVULSION
     Dosage: 75 MG, 2X/DAY, DAILY
     Route: 048
     Dates: start: 20090501
  4. AMLODIPINE [Concomitant]
     Dosage: UNK
  5. DICLOFENAC [Concomitant]
     Dosage: UNK
  6. TOPIRAMATE [Concomitant]
     Dosage: UNK
  7. LEVETIRACETAM [Concomitant]
     Dosage: UNK

REACTIONS (9)
  - ABDOMINAL DISTENSION [None]
  - ANGINA PECTORIS [None]
  - ARTHRALGIA [None]
  - BLOOD PRESSURE INCREASED [None]
  - BREAST PAIN [None]
  - CARDIAC DISORDER [None]
  - CHEST PAIN [None]
  - DRUG INEFFECTIVE [None]
  - PAIN [None]
